FAERS Safety Report 10203548 (Version 1)
Quarter: 2014Q2

REPORT INFORMATION
  Report Type: Spontaneous
  Country: US (occurrence: US)
  Receive Date: 20140529
  Receipt Date: 20140529
  Transmission Date: 20141212
  Serious: Yes (Other)
  Sender: FDA-Public Use
  Company Number: US-MYLANLABS-2014S1011784

PATIENT
  Age: 58 Year
  Sex: Male

DRUGS (1)
  1. CARBIDOPA W/LEVODOPA [Suspect]
     Indication: PARKINSON^S DISEASE
     Dosage: INCLUDED NOTEWORTHY DOSE OF LEVODOPA
     Route: 065

REACTIONS (3)
  - Radius fracture [Recovered/Resolved]
  - Extraskeletal ossification [Unknown]
  - Dyskinesia [Unknown]
